FAERS Safety Report 17578670 (Version 1)
Quarter: 2020Q1

REPORT INFORMATION
  Report Type: Spontaneous
  Country: US (occurrence: US)
  Receive Date: 20200324
  Receipt Date: 20200324
  Transmission Date: 20200409
  Serious: Yes (Hospitalization, Other)
  Sender: FDA-Public Use
  Company Number: US-NOVOPROD-714542

PATIENT
  Age: 60 Year
  Sex: Female

DRUGS (2)
  1. LANTUS [Concomitant]
     Active Substance: INSULIN GLARGINE
     Indication: PRODUCT USED FOR UNKNOWN INDICATION
     Dosage: UNK
     Route: 065
  2. NOVOLOG [Suspect]
     Active Substance: INSULIN ASPART
     Indication: PRODUCT USED FOR UNKNOWN INDICATION
     Dosage: SLIDING SCALE
     Route: 058

REACTIONS (7)
  - Hallucination [Recovered/Resolved]
  - Blood glucose increased [Recovered/Resolved]
  - Hyperglycaemic unconsciousness [Recovered/Resolved]
  - Renal failure [Recovered/Resolved]
  - Blood glucose increased [Recovered/Resolved]
  - Intentional dose omission [Unknown]
  - Scratch [Recovered/Resolved]

NARRATIVE: CASE EVENT DATE: 2017
